FAERS Safety Report 10576460 (Version 4)
Quarter: 2019Q1

REPORT INFORMATION
  Report Type: Spontaneous
  Country: DE (occurrence: DE)
  Receive Date: 20141111
  Receipt Date: 20190207
  Transmission Date: 20190417
  Serious: Yes (Congenital Anomaly)
  Sender: FDA-Public Use
  Company Number: PHHY2014DE145279

PATIENT
  Sex: Female
  Weight: 3.58 kg

DRUGS (12)
  1. PROPOXYPHENE. [Suspect]
     Active Substance: PROPOXYPHENE
     Indication: FOETAL EXPOSURE DURING PREGNANCY
     Route: 064
  2. INFLUENZA VIRUS VACCINE [Suspect]
     Active Substance: INFLUENZA VIRUS VACCINE
     Indication: FOETAL EXPOSURE DURING PREGNANCY
     Route: 064
  3. METHYLPREDNISOLONE. [Suspect]
     Active Substance: METHYLPREDNISOLONE
     Indication: FOETAL EXPOSURE DURING PREGNANCY
     Route: 064
  4. METHOTREXATE. [Suspect]
     Active Substance: METHOTREXATE
     Indication: FOETAL EXPOSURE DURING PREGNANCY
     Dosage: MATERNAL DOSE: 7.5 MG, QW
     Route: 064
  5. FLUTICASONE. [Suspect]
     Active Substance: FLUTICASONE
     Indication: FOETAL EXPOSURE DURING PREGNANCY
     Route: 064
  6. CHLORPHENIRAMINE MALEATE. [Suspect]
     Active Substance: CHLORPHENIRAMINE MALEATE
     Indication: FOETAL EXPOSURE DURING PREGNANCY
     Route: 064
  7. INFLIXIMAB [Suspect]
     Active Substance: INFLIXIMAB
     Indication: FOETAL EXPOSURE DURING PREGNANCY
     Route: 064
  8. HYDROCODONE [Suspect]
     Active Substance: HYDROCODONE
     Indication: FOETAL EXPOSURE DURING PREGNANCY
     Route: 064
  9. ONDANSETRON [Suspect]
     Active Substance: ONDANSETRON
     Indication: FOETAL EXPOSURE DURING PREGNANCY
     Route: 064
  10. PREDNISOLONE. [Suspect]
     Active Substance: PREDNISOLONE
     Indication: PRODUCT USED FOR UNKNOWN INDICATION
     Route: 064
  11. PARACETAMOL [Suspect]
     Active Substance: ACETAMINOPHEN
     Indication: FOETAL EXPOSURE DURING PREGNANCY
     Route: 064
  12. ADALIMUMAB [Suspect]
     Active Substance: ADALIMUMAB
     Indication: FOETAL EXPOSURE DURING PREGNANCY
     Route: 064

REACTIONS (3)
  - Foetal exposure during pregnancy [Unknown]
  - Pulmonary artery stenosis congenital [Unknown]
  - Atrial septal defect [Unknown]
